FAERS Safety Report 19270376 (Version 3)
Quarter: 2022Q3

REPORT INFORMATION
  Report Type: Spontaneous
  Country: CA (occurrence: CA)
  Receive Date: 20210518
  Receipt Date: 20220726
  Transmission Date: 20221027
  Serious: Yes (Other)
  Sender: FDA-Public Use
  Company Number: CA-SAMSUNG BIOEPIS-SB-2021-11678

PATIENT
  Age: 52 Year
  Sex: Female
  Weight: 82 kg

DRUGS (2)
  1. INFLIXIMAB [Suspect]
     Active Substance: INFLIXIMAB
     Indication: Crohn^s disease
     Route: 042
  2. HYDROCORTISONE [Concomitant]
     Active Substance: HYDROCORTISONE
     Indication: Premedication
     Route: 065

REACTIONS (15)
  - Abdominal distension [Unknown]
  - Blood pressure diastolic increased [Unknown]
  - Fatigue [Unknown]
  - Pain [Unknown]
  - Weight increased [Unknown]
  - Condition aggravated [Unknown]
  - Weight decreased [Unknown]
  - Arthralgia [Unknown]
  - Dizziness [Unknown]
  - Eye disorder [Unknown]
  - Headache [Unknown]
  - Migraine [Unknown]
  - Uveitis [Unknown]
  - Off label use [Unknown]
  - Inappropriate schedule of product administration [Unknown]
